FAERS Safety Report 18159721 (Version 1)
Quarter: 2020Q3

REPORT INFORMATION
  Report Type: Spontaneous
  Country: AU (occurrence: AU)
  Receive Date: 20200817
  Receipt Date: 20200817
  Transmission Date: 20201103
  Serious: Yes (Hospitalization)
  Sender: FDA-Public Use
  Company Number: AU-ELI_LILLY_AND_COMPANY-AU202007000041

PATIENT
  Sex: Female
  Weight: 58.7 kg

DRUGS (2)
  1. TADALAFIL 20MG [Suspect]
     Active Substance: TADALAFIL
     Indication: PRODUCT USED FOR UNKNOWN INDICATION
     Dosage: 20 MG, UNKNOWN
     Route: 048
     Dates: start: 20200415
  2. VOLIBRIS [Suspect]
     Active Substance: AMBRISENTAN
     Indication: PRODUCT USED FOR UNKNOWN INDICATION
     Dosage: 5 MG, UNKNOWN
     Route: 048
     Dates: start: 20200415, end: 20200602

REACTIONS (2)
  - Orthostatic hypotension [Unknown]
  - Fluid retention [Recovering/Resolving]
